FAERS Safety Report 16900513 (Version 1)
Quarter: 2019Q4

REPORT INFORMATION
  Report Type: Spontaneous
  Country: US (occurrence: US)
  Receive Date: 20190815
  Receipt Date: 20190815
  Transmission Date: 20200122
  Serious: Yes (Hospitalization)
  Sender: FDA-Public Use
  Company Number: None

PATIENT
  Age: 56 Year
  Sex: Male

DRUGS (6)
  1. SUMATRIPTAN. [Concomitant]
     Active Substance: SUMATRIPTAN
  2. ONDANSETRON [Concomitant]
     Active Substance: ONDANSETRON
  3. RPINIROLE [Concomitant]
  4. COPAXONE [Concomitant]
     Active Substance: GLATIRAMER ACETATE
  5. TRAMADOL. [Concomitant]
     Active Substance: TRAMADOL
  6. BOTOX [Suspect]
     Active Substance: ONABOTULINUMTOXINA
     Indication: MIGRAINE
     Dosage: ?          OTHER ROUTE:Q 3 MONTHS?
     Dates: start: 20190313

REACTIONS (5)
  - Balance disorder [None]
  - Speech disorder [None]
  - Therapy cessation [None]
  - Muscle rupture [None]
  - Multiple sclerosis relapse [None]
